FAERS Safety Report 5212892-7 (Version None)
Quarter: 2007Q1

REPORT INFORMATION
  Report Type: 
  Country: None (occurrence: None)
  Receive Date: 20070119
  Receipt Date: 20070112
  Transmission Date: 20070707
  Serious: Yes (Life-Threatening, Hospitalization, Other)
  Sender: FDA-Public Use
  Company Number: US-BAYER-200511445BCC

PATIENT
  Age: 73 Year
  Sex: Female

DRUGS (3)
  1. ALEVE [Suspect]
     Indication: ARTHRALGIA
     Dosage: TOTAL DAILY DOSE: 880 MG  UNIT DOSE: 220 MG
     Route: 048
  2. MOTRIN [Suspect]
     Indication: OSTEOARTHRITIS
     Dosage: TOTAL DAILY DOSE: 2400 MG  UNIT DOSE: 800 MG
  3. NAPROSYN [Suspect]
     Indication: OSTEOARTHRITIS

REACTIONS (18)
  - ASTHENIA [None]
  - DEPRESSED MOOD [None]
  - DIVERTICULUM [None]
  - DYSPNOEA EXERTIONAL [None]
  - FATIGUE [None]
  - GASTROINTESTINAL HAEMORRHAGE [None]
  - HAEMATOCRIT DECREASED [None]
  - HAEMOGLOBIN DECREASED [None]
  - HIATUS HERNIA [None]
  - IRON DEFICIENCY ANAEMIA [None]
  - MUSCLE SPASMS [None]
  - OCCULT BLOOD POSITIVE [None]
  - PAIN [None]
  - PULMONARY OEDEMA [None]
  - STOMACH DISCOMFORT [None]
  - SUICIDE ATTEMPT [None]
  - SYNCOPE [None]
  - VENTRICULAR TACHYCARDIA [None]
